FAERS Safety Report 21029032 (Version 1)
Quarter: 2022Q2

REPORT INFORMATION
  Report Type: Spontaneous
  Country: DE (occurrence: DE)
  Receive Date: 20220630
  Receipt Date: 20220630
  Transmission Date: 20220721
  Serious: Yes (Death, Other)
  Sender: FDA-Public Use
  Company Number: DE-BRISTOL-MYERS SQUIBB COMPANY-2022-064373

PATIENT
  Age: 29 Year
  Sex: Male

DRUGS (1)
  1. ELIQUIS [Suspect]
     Active Substance: APIXABAN
     Indication: Product used for unknown indication
     Route: 065

REACTIONS (7)
  - Nephrotic syndrome [Fatal]
  - Acquired antithrombin III deficiency [Fatal]
  - Deep vein thrombosis [Fatal]
  - Pulmonary embolism [Fatal]
  - Infarction [Fatal]
  - Respiratory failure [Unknown]
  - Cerebral infarction [Unknown]
